FAERS Safety Report 8866127 (Version 1)
Quarter: 2012Q4

REPORT INFORMATION
  Report Type: Report from Study
  Country: DE (occurrence: DE)
  Receive Date: 20121025
  Receipt Date: 20121025
  Transmission Date: 20130627
  Serious: Yes (Life-Threatening, Hospitalization)
  Sender: FDA-Public Use
  Company Number: DE-PFIZER INC-2012261649

PATIENT
  Age: 76 Year
  Sex: Male
  Weight: 67.4 kg

DRUGS (22)
  1. LYRICA [Suspect]
     Indication: PAIN
     Dosage: 75-150 mg daily
     Route: 048
     Dates: start: 20080410, end: 20120514
  2. AMN107 [Suspect]
     Indication: CHRONIC MYELOID LEUKAEMIA
     Dosage: 800 mg daily
     Route: 048
     Dates: start: 20111111, end: 20120714
  3. AQUAPHOR TABLET [Suspect]
     Indication: RENAL FAILURE
     Dosage: 10 mg daily
     Route: 048
     Dates: start: 20120410
  4. EBRANTIL [Suspect]
     Indication: HYPERTENSION
     Dosage: 180 mg daily
     Route: 048
     Dates: start: 20120515, end: 20120714
  5. BELOC ZOK [Concomitant]
     Dosage: UNK
     Dates: start: 20120714
  6. TILIDIN ^RATIOPHARM^ [Concomitant]
     Dosage: UNK
     Dates: start: 20120515
  7. SIMVASTATIN [Concomitant]
     Dosage: UNK
     Dates: start: 20100902
  8. ASS [Concomitant]
     Dosage: UNK
     Dates: start: 20100902
  9. EXFORGE HCT [Concomitant]
  10. NEXIUM [Concomitant]
  11. MUSARIL [Concomitant]
     Dosage: UNK
     Dates: start: 20111116, end: 20111221
  12. PREDNISOLONE [Concomitant]
     Dosage: UNK
     Dates: start: 20100517
  13. TOREM [Concomitant]
     Dosage: UNK
     Dates: start: 20080410, end: 20120727
  14. FURESIS COMP [Concomitant]
     Dosage: UNK
     Dates: start: 20120727
  15. CARMEN [Concomitant]
     Dosage: UNK
     Dates: start: 20110714
  16. VALSARTAN [Concomitant]
     Dosage: UNK
     Dates: start: 20111221
  17. CYNT [Concomitant]
     Dosage: UNK
     Dates: start: 20110714
  18. OMEPRAZOLE [Concomitant]
     Dosage: UNK
     Dates: start: 20061201
  19. NEBIVOLOL [Concomitant]
     Dosage: UNK
     Dates: start: 20111221, end: 20120714
  20. BIFITERAL [Concomitant]
     Dosage: UNK
     Dates: start: 20120804
  21. AMLODIPINE [Concomitant]
     Dosage: UNK
     Dates: start: 20120213, end: 20120514
  22. SAROTEN [Concomitant]

REACTIONS (6)
  - Disorientation [Not Recovered/Not Resolved]
  - Renal failure acute [Not Recovered/Not Resolved]
  - Urine output decreased [Not Recovered/Not Resolved]
  - Bladder hypertrophy [Not Recovered/Not Resolved]
  - Hypertension [Recovered/Resolved]
  - Transient ischaemic attack [Not Recovered/Not Resolved]
